FAERS Safety Report 8225834-7 (Version None)
Quarter: 2012Q1

REPORT INFORMATION
  Report Type: 
  Country: None (occurrence: None)
  Receive Date: 20120321
  Receipt Date: 20120309
  Transmission Date: 20120608
  Serious: Yes (Hospitalization)
  Sender: FDA-Public Use
  Company Number: US-ROCHE-1047388

PATIENT
  Age: 45 Year
  Sex: Female
  Weight: 85 kg

DRUGS (2)
  1. AVASTIN [Suspect]
     Indication: FALLOPIAN TUBE CANCER
     Dates: start: 20110823
  2. DECADRON [Concomitant]

REACTIONS (3)
  - RASH MACULO-PAPULAR [None]
  - CONFUSIONAL STATE [None]
  - PSYCHOTIC DISORDER [None]
